FAERS Safety Report 25667901 (Version 1)
Quarter: 2025Q3

REPORT INFORMATION
  Report Type: Spontaneous
  Country: US (occurrence: US)
  Receive Date: 20250812
  Receipt Date: 20250812
  Transmission Date: 20251020
  Serious: No
  Sender: ENDO
  Company Number: US-ENDO USA, INC.-2024-050155

PATIENT
  Sex: Male

DRUGS (9)
  1. TESTOPEL [Suspect]
     Active Substance: TESTOSTERONE
     Indication: Product used for unknown indication
     Route: 051
     Dates: start: 20241002
  2. TESTOPEL [Suspect]
     Active Substance: TESTOSTERONE
     Indication: Product used for unknown indication
     Route: 051
     Dates: start: 20241002
  3. TESTOPEL [Suspect]
     Active Substance: TESTOSTERONE
     Indication: Product used for unknown indication
     Route: 051
     Dates: start: 20241002
  4. TESTOPEL [Suspect]
     Active Substance: TESTOSTERONE
     Route: 051
  5. TESTOPEL [Suspect]
     Active Substance: TESTOSTERONE
     Route: 051
  6. TESTOPEL [Suspect]
     Active Substance: TESTOSTERONE
     Route: 051
  7. TESTOPEL [Suspect]
     Active Substance: TESTOSTERONE
     Route: 051
  8. TESTOPEL [Suspect]
     Active Substance: TESTOSTERONE
     Route: 051
  9. TESTOPEL [Suspect]
     Active Substance: TESTOSTERONE
     Route: 051

REACTIONS (1)
  - Dizziness [Not Recovered/Not Resolved]

NARRATIVE: CASE EVENT DATE: 20241005
